FAERS Safety Report 19782629 (Version 1)
Quarter: 2021Q3

REPORT INFORMATION
  Report Type: Spontaneous
  Country: US (occurrence: US)
  Receive Date: 20210902
  Receipt Date: 20210902
  Transmission Date: 20211014
  Serious: No
  Sender: FDA-Public Use
  Company Number: US-ENDO PHARMACEUTICALS INC-2020-007612

PATIENT
  Sex: Female

DRUGS (3)
  1. PREDNISONE. [Suspect]
     Active Substance: PREDNISONE
     Indication: TYMPANIC MEMBRANE PERFORATION
     Dosage: UNK UNKNOWN, UNKNOWN
     Route: 065
     Dates: start: 201809
  2. CLINDAMYCIN. [Suspect]
     Active Substance: CLINDAMYCIN
     Indication: TYMPANIC MEMBRANE PERFORATION
     Dosage: UNK UNKNOWN, UNKNOWN
     Route: 065
  3. ATIVAN [Suspect]
     Active Substance: LORAZEPAM
     Indication: PRODUCT USED FOR UNKNOWN INDICATION
     Dosage: UNK UNKNOWN, UNKNOWN
     Route: 065

REACTIONS (5)
  - Therapeutic product effect incomplete [Unknown]
  - Speech disorder [Recovered/Resolved]
  - Tremor [Recovered/Resolved]
  - Renal impairment [Unknown]
  - Peripheral swelling [Recovered/Resolved]
